FAERS Safety Report 6264007-4 (Version None)
Quarter: 2009Q3

REPORT INFORMATION
  Report Type: 
  Country: None (occurrence: None)
  Receive Date: 20090710
  Receipt Date: 20090706
  Transmission Date: 20100115
  Serious: Yes (Life-Threatening)
  Sender: FDA-Public Use
  Company Number: AU-ASTRAZENECA-2009SE04076

PATIENT
  Age: 83 Year
  Sex: Female

DRUGS (6)
  1. PROPOFOL [Suspect]
     Dosage: ONCE/SINGLE ADMINISTRATION
     Route: 042
  2. FENTANYL [Interacting]
     Indication: PAIN
     Route: 042
     Dates: start: 20080704, end: 20080704
  3. MIDAZOLAM HCL [Interacting]
     Dosage: ONCE/SINGLE ADMINISTRATION
  4. CEFAZOLIN-BC [Concomitant]
  5. DEXAMETHASONE [Concomitant]
  6. GRANISETRON HCL [Concomitant]

REACTIONS (2)
  - DRUG INTERACTION [None]
  - RESPIRATORY ARREST [None]
